FAERS Safety Report 9473072 (Version 1)
Quarter: 2013Q3

REPORT INFORMATION
  Report Type: Spontaneous
  Country: US (occurrence: US)
  Receive Date: 20130823
  Receipt Date: 20130823
  Transmission Date: 20140515
  Serious: Yes (Other)
  Sender: FDA-Public Use
  Company Number: US-BRISTOL-MYERS SQUIBB COMPANY-17403155

PATIENT
  Age: 54 Year
  Sex: Female

DRUGS (1)
  1. SPRYCEL (CML) TABS 100 MG [Suspect]
     Indication: CHRONIC MYELOID LEUKAEMIA
     Dates: start: 201202

REACTIONS (5)
  - Anaemia [Unknown]
  - Dyspnoea [Unknown]
  - Insomnia [Unknown]
  - Pain in extremity [Unknown]
  - Heart rate irregular [Unknown]
